FAERS Safety Report 18076581 (Version 1)
Quarter: 2020Q3

REPORT INFORMATION
  Report Type: Spontaneous
  Country: US (occurrence: US)
  Receive Date: 20200727
  Receipt Date: 20200727
  Transmission Date: 20201103
  Serious: Yes (Death, Other)
  Sender: FDA-Public Use
  Company Number: US-GILEAD-2020-0486049

PATIENT
  Age: 72 Year
  Sex: Male
  Weight: 173 kg

DRUGS (18)
  1. ASCORBIC ACID. [Concomitant]
     Active Substance: ASCORBIC ACID
  2. AMLODIPINE [Concomitant]
     Active Substance: AMLODIPINE BESYLATE
  3. ACETAMINOPHEN. [Concomitant]
     Active Substance: ACETAMINOPHEN
  4. LANSOPRAZOLE. [Concomitant]
     Active Substance: LANSOPRAZOLE
  5. INSULIN [Concomitant]
     Active Substance: INSULIN NOS
  6. LORAZEPAM. [Concomitant]
     Active Substance: LORAZEPAM
  7. NOREPINEPHRINE. [Concomitant]
     Active Substance: NOREPINEPHRINE
  8. REMDESIVIR. [Suspect]
     Active Substance: REMDESIVIR
     Indication: COVID-19
     Dosage: UNK
     Route: 065
     Dates: start: 20200620, end: 20200629
  9. CARVEDILOL. [Concomitant]
     Active Substance: CARVEDILOL
  10. LOSARTAN. [Concomitant]
     Active Substance: LOSARTAN
  11. PROPOFOL. [Concomitant]
     Active Substance: PROPOFOL
  12. ROCURONIUM [Concomitant]
     Active Substance: ROCURONIUM BROMIDE
  13. FENTANYL. [Concomitant]
     Active Substance: FENTANYL
  14. METHYLPREDNISOLONE. [Concomitant]
     Active Substance: METHYLPREDNISOLONE
  15. ETOMIDATE. [Concomitant]
     Active Substance: ETOMIDATE
  16. MIDAZOLAM. [Concomitant]
     Active Substance: MIDAZOLAM
  17. ENOXAPARIN [Concomitant]
     Active Substance: ENOXAPARIN
  18. TOCILIZUMAB. [Concomitant]
     Active Substance: TOCILIZUMAB

REACTIONS (2)
  - Acute myocardial infarction [Fatal]
  - COVID-19 [Fatal]

NARRATIVE: CASE EVENT DATE: 20200718
